FAERS Safety Report 6595336-2 (Version None)
Quarter: 2010Q1

REPORT INFORMATION
  Report Type: 
  Country: None (occurrence: None)
  Receive Date: 20100223
  Receipt Date: 20100214
  Transmission Date: 20100710
  Serious: Yes (Hospitalization, Other)
  Sender: FDA-Public Use
  Company Number: US-BIOGENIDEC-2009BI007539

PATIENT
  Sex: Female

DRUGS (2)
  1. TYSABRI [Suspect]
     Indication: MULTIPLE SCLEROSIS
     Route: 042
     Dates: start: 20080111, end: 20081218
  2. TYSABRI [Suspect]
     Route: 042
     Dates: start: 20090303, end: 20100205

REACTIONS (21)
  - ANAEMIA [None]
  - ARTHROPATHY [None]
  - BLOOD POTASSIUM DECREASED [None]
  - BRONCHITIS [None]
  - CONFUSIONAL STATE [None]
  - DEPRESSION [None]
  - DRUG TOXICITY [None]
  - DYSPNOEA [None]
  - FEELING ABNORMAL [None]
  - HYPOAESTHESIA [None]
  - LOSS OF CONTROL OF LEGS [None]
  - MEMORY IMPAIRMENT [None]
  - MULTIPLE SCLEROSIS [None]
  - MUSCLE SPASMS [None]
  - NAUSEA [None]
  - NERVOUS SYSTEM DISORDER [None]
  - PAIN [None]
  - PALPITATIONS [None]
  - PARAESTHESIA [None]
  - SECONDARY PROGRESSIVE MULTIPLE SCLEROSIS [None]
  - VOMITING [None]
